FAERS Safety Report 9364456 (Version 1)
Quarter: 2013Q2

REPORT INFORMATION
  Report Type: Spontaneous
  Country: BR (occurrence: BR)
  Receive Date: 20130624
  Receipt Date: 20130624
  Transmission Date: 20140414
  Serious: Yes (Other)
  Sender: FDA-Public Use
  Company Number: BR-PFIZER INC-2013187023

PATIENT
  Sex: Female

DRUGS (2)
  1. LYRICA [Suspect]
     Dosage: STRENGTH 75 MG
     Dates: start: 201302
  2. LYRICA [Suspect]
     Dosage: STRENGTH 150 MG
     Route: 048
     Dates: start: 201304

REACTIONS (4)
  - Cellulitis [Unknown]
  - Blister [Unknown]
  - Skin exfoliation [Not Recovered/Not Resolved]
  - Rash papular [Unknown]
